FAERS Safety Report 23661437 (Version 1)
Quarter: 2024Q1

REPORT INFORMATION
  Report Type: Spontaneous
  Country: RU (occurrence: RU)
  Receive Date: 20240322
  Receipt Date: 20240322
  Transmission Date: 20240410
  Serious: Yes (Other)
  Sender: FDA-Public Use
  Company Number: RU-SA-SAC20240320000040

PATIENT
  Age: 8 Year
  Sex: Male

DRUGS (1)
  1. APIDRA SOLOSTAR [Suspect]
     Active Substance: INSULIN GLULISINE
     Dosage: UNK
     Route: 058

REACTIONS (3)
  - Injection site pain [Recovering/Resolving]
  - Headache [Recovering/Resolving]
  - Hyperglycaemia [Recovering/Resolving]
